FAERS Safety Report 16163187 (Version 1)
Quarter: 2019Q2

REPORT INFORMATION
  Report Type: Spontaneous
  Country: US (occurrence: US)
  Receive Date: 20190304
  Receipt Date: 20190304
  Transmission Date: 20190711
  Serious: No
  Sender: FDA-Public Use
  Company Number: None

PATIENT
  Age: 38 Year
  Sex: Female

DRUGS (1)
  1. SPRYCEL [Suspect]
     Active Substance: DASATINIB
     Route: 048
     Dates: start: 201901

REACTIONS (3)
  - Fatigue [None]
  - Menopausal symptoms [None]
  - Blood follicle stimulating hormone increased [None]

NARRATIVE: CASE EVENT DATE: 20190304
